FAERS Safety Report 14917358 (Version 1)
Quarter: 2018Q2

REPORT INFORMATION
  Report Type: Spontaneous
  Country: GB (occurrence: GB)
  Receive Date: 20180521
  Receipt Date: 20180521
  Transmission Date: 20180711
  Serious: Yes (Hospitalization)
  Sender: FDA-Public Use
  Company Number: GB-TEVA-2018-GB-894259

PATIENT
  Sex: Male

DRUGS (7)
  1. CODEINE [Suspect]
     Active Substance: CODEINE
     Indication: PAIN
     Dosage: 120 MILLIGRAM DAILY;
     Route: 048
     Dates: start: 20171026, end: 20171108
  2. TAMSULOSIN [Concomitant]
     Active Substance: TAMSULOSIN
     Indication: URGE INCONTINENCE
     Dosage: 400 MICROGRAM DAILY;
     Route: 065
  3. FUROSEMIDE. [Concomitant]
     Active Substance: FUROSEMIDE
     Indication: COR PULMONALE
     Dosage: 220 MILLIGRAM DAILY;
     Route: 065
  4. EVACAL D3 CHEWABLE [Concomitant]
     Indication: NUTRITIONAL SUPPLEMENTATION
     Dosage: 2 DOSAGE FORMS DAILY;
     Route: 065
  5. COCODAMOL [Suspect]
     Active Substance: ACETAMINOPHEN\CODEINE PHOSPHATE
     Indication: PAIN
     Dosage: 8 DOSAGE FORMS DAILY; 8/500MG
     Route: 048
     Dates: end: 20171108
  6. SIMVASTATIN. [Concomitant]
     Active Substance: SIMVASTATIN
     Indication: PROPHYLAXIS
     Dosage: 40 MILLIGRAM DAILY;
     Route: 065
  7. WARFARIN [Concomitant]
     Active Substance: WARFARIN
     Indication: DEEP VEIN THROMBOSIS
     Dosage: 1 DOSAGE FORMS DAILY;
     Route: 065

REACTIONS (3)
  - Hypophagia [Recovered/Resolved]
  - Constipation [Recovered/Resolved]
  - Nausea [Recovered/Resolved]

NARRATIVE: CASE EVENT DATE: 20171103
